FAERS Safety Report 20705593 (Version 16)
Quarter: 2022Q4

REPORT INFORMATION
  Report Type: Report from Study
  Country: NO (occurrence: None)
  Receive Date: 20220413
  Receipt Date: 20221012
  Transmission Date: 20230112
  Serious: Yes (Hospitalization)
  Sender: FDA-Public Use
  Company Number: NO-Eisai Medical Research-EC-2022-112701

PATIENT
  Age: 69 Year
  Sex: Male
  Weight: 99.7 kg

DRUGS (12)
  1. LENVATINIB [Suspect]
     Active Substance: LENVATINIB
     Indication: Renal cell carcinoma
     Dosage: STARTING DOSE AT: 20 MILLIGRAM (FLUCTUATED DOSAGE)
     Route: 048
     Dates: start: 20220111, end: 20220405
  2. LENVATINIB [Suspect]
     Active Substance: LENVATINIB
     Dosage: STARTING DOSE 14 MG (FLUCTUATED DOSAGE)
     Route: 048
     Dates: start: 20220412
  3. QUAVONLIMAB [Suspect]
     Active Substance: QUAVONLIMAB
     Indication: Renal cell carcinoma
     Dosage: QUAVONLIMAB (MK-1308) 25 MG (+) PEMBROLIZUMAB (MK-3475) 400 MG (MK-1308A)
     Route: 042
     Dates: start: 20220111, end: 20220223
  4. PEMBROLIZUMAB [Suspect]
     Active Substance: PEMBROLIZUMAB
     Dosage: QUAVONLIMAB (MK-1308) 25 MG (+) PEMBROLIZUMAB (MK-3475) 400 MG (MK-1308A)
     Route: 042
     Dates: start: 20220406
  5. NEXIUM [Concomitant]
     Active Substance: ESOMEPRAZOLE MAGNESIUM
     Dates: start: 201101
  6. EZETIMIBE [Concomitant]
     Active Substance: EZETIMIBE
     Dates: start: 201601
  7. SIMVASTATIN [Concomitant]
     Active Substance: SIMVASTATIN
     Dates: start: 201601
  8. VIMOVO [Concomitant]
     Active Substance: ESOMEPRAZOLE MAGNESIUM\NAPROXEN
     Dates: start: 201801
  9. ASPIRIN\MAGNESIUM OXIDE [Concomitant]
     Active Substance: ASPIRIN\MAGNESIUM OXIDE
     Dates: start: 20201022
  10. POLYETHYLENE GLYCOL 3350\POTASSIUM CHLORIDE\SODIUM BICARBONATE\SODIUM [Concomitant]
     Active Substance: POLYETHYLENE GLYCOL 3350\POTASSIUM CHLORIDE\SODIUM BICARBONATE\SODIUM CHLORIDE
     Dates: start: 202101
  11. MAGNESIUM [Concomitant]
     Active Substance: MAGNESIUM
     Dates: start: 20220129, end: 20220405
  12. LOCOID [Concomitant]
     Active Substance: HYDROCORTISONE BUTYRATE
     Dates: start: 20220126

REACTIONS (1)
  - Hypomagnesaemia [Recovered/Resolved]

NARRATIVE: CASE EVENT DATE: 20220405
